FAERS Safety Report 23139677 (Version 1)
Quarter: 2023Q4

REPORT INFORMATION
  Report Type: Spontaneous
  Country: CN (occurrence: CN)
  Receive Date: 20231102
  Receipt Date: 20231102
  Transmission Date: 20240109
  Serious: Yes (Hospitalization, Other)
  Sender: FDA-Public Use
  Company Number: CN-FreseniusKabi-FK202317273

PATIENT
  Age: 31 Year
  Sex: Female

DRUGS (2)
  1. FAT EMULSION NOS [Suspect]
     Active Substance: EGG PHOSPHOLIPIDS\SAFFLOWER OIL\SOYBEAN OIL
     Indication: Supportive care
     Route: 042
  2. AMINO ACIDS, SOURCE UNSPECIFIED [Suspect]
     Active Substance: AMINO ACIDS, SOURCE UNSPECIFIED
     Indication: Supportive care
     Route: 065

REACTIONS (15)
  - Seizure [Recovered/Resolved]
  - Hepatic function abnormal [Recovered/Resolved]
  - Renal impairment [Recovered/Resolved]
  - Cardiac dysfunction [Recovered/Resolved]
  - Disseminated intravascular coagulation [Recovered/Resolved]
  - Diplopia [Recovered/Resolved]
  - Dysphoria [Recovered/Resolved]
  - Temperature intolerance [Recovered/Resolved]
  - Chest discomfort [Recovered/Resolved]
  - Palpitations [Recovered/Resolved]
  - Infusion site haemorrhage [Recovered/Resolved]
  - Haemoptysis [Recovered/Resolved]
  - Productive cough [Recovered/Resolved]
  - Vaginal haemorrhage [Recovered/Resolved]
  - Electroencephalogram abnormal [Recovered/Resolved]
